FAERS Safety Report 5188734-5 (Version None)
Quarter: 2006Q4

REPORT INFORMATION
  Report Type: 
  Country: None (occurrence: None)
  Receive Date: 20061215
  Receipt Date: 20061201
  Transmission Date: 20070319
  Serious: Yes (Hospitalization)
  Sender: FDA-Public Use
  Company Number: 2006120007

PATIENT
  Age: 22 Year
  Sex: Female

DRUGS (2)
  1. FELBAMATE (FELBAMATE) [Suspect]
     Indication: GRAND MAL CONVULSION
     Dosage: 600 MG (3 IN 1 D), PO
     Route: 048
  2. LAMOTRIGINE [Suspect]
     Indication: GRAND MAL CONVULSION
     Dosage: 200 MG (3 IN 1 D), PO
     Route: 048

REACTIONS (7)
  - BLOOD POTASSIUM DECREASED [None]
  - DRUG ABUSER [None]
  - DRUG TOXICITY [None]
  - ELECTROCARDIOGRAM QRS COMPLEX PROLONGED [None]
  - GRAND MAL CONVULSION [None]
  - MULTIPLE DRUG OVERDOSE [None]
  - SINUS TACHYCARDIA [None]
